FAERS Safety Report 8328660-3 (Version None)
Quarter: 2012Q2

REPORT INFORMATION
  Report Type: 
  Country: None (occurrence: None)
  Receive Date: 20120502
  Receipt Date: 20120425
  Transmission Date: 20120825
  Serious: No
  Sender: FDA-Public Use
  Company Number: US-BAYER-2012-042023

PATIENT
  Age: 89 Year
  Sex: Male
  Weight: 92 kg

DRUGS (2)
  1. NAPROXEN SODIUM [Suspect]
     Indication: ANALGESIC THERAPY
     Dosage: 2 TABS
     Route: 048
  2. DIABETIC MEDICATION [Concomitant]

REACTIONS (2)
  - MEDICATION ERROR [None]
  - ABDOMINAL PAIN [None]
